FAERS Safety Report 7394786-4 (Version None)
Quarter: 2011Q2

REPORT INFORMATION
  Report Type: 
  Country: None (occurrence: None)
  Receive Date: 20110405
  Receipt Date: 20110331
  Transmission Date: 20111010
  Serious: Yes (Death, Other)
  Sender: FDA-Public Use
  Company Number: US-AMGEN AB-US383670

PATIENT
  Age: 89 Year
  Sex: Male
  Weight: 53.1 kg

DRUGS (14)
  1. NPLATE [Suspect]
     Dosage: 2 A?G/KG, QWK
     Route: 058
     Dates: start: 20100105, end: 20100917
  2. LORATADINE [Concomitant]
     Dosage: 10 MG, QD
     Route: 065
  3. CORTICOSTEROIDS [Concomitant]
     Dosage: UNK
     Dates: start: 20091120, end: 20091203
  4. DIGOXIN [Concomitant]
     Dosage: .125 MG, QD
     Route: 065
  5. IRON [Concomitant]
     Dosage: UNK UNK, BID
     Route: 065
  6. DOXAZOSIN MESYLATE [Concomitant]
     Dosage: 1 MG, QD
     Route: 065
  7. OMEPRAZOLE [Concomitant]
     Dosage: 20 MG, QD
     Route: 065
  8. TRAMADOL [Concomitant]
     Dosage: 25 MG, PRN
     Route: 065
  9. GLYCERYL TRINITRATE [Concomitant]
     Dosage: UNK UNK, PRN
     Route: 065
  10. NPLATE [Suspect]
     Dates: start: 20091211
  11. NPLATE [Suspect]
     Indication: IDIOPATHIC THROMBOCYTOPENIC PURPURA
     Dosage: 60 A?G, QWK
     Route: 058
     Dates: start: 20091211
  12. METOPROLOL TARTRATE [Concomitant]
     Dosage: 50 MG, TID
     Route: 065
  13. TRANDOLAPRIL [Concomitant]
     Dosage: 4 MG, QD
     Route: 065
  14. SENNA CONCENTRATE [Concomitant]
     Dosage: UNK UNK, PRN
     Route: 065

REACTIONS (3)
  - CARDIAC DEATH [None]
  - CARDIAC FAILURE CONGESTIVE [None]
  - CHRONIC OBSTRUCTIVE PULMONARY DISEASE [None]
